FAERS Safety Report 6207064-3 (Version None)
Quarter: 2009Q2

REPORT INFORMATION
  Report Type: 
  Country: None (occurrence: None)
  Receive Date: 20090528
  Receipt Date: 20090518
  Transmission Date: 20091009
  Serious: Yes (Hospitalization)
  Sender: FDA-Public Use
  Company Number: BR-WATSON-2009-03571

PATIENT
  Age: 2 Year
  Sex: Female

DRUGS (3)
  1. OXACILLIN SODIUM (WATSON LABORATORIES) [Suspect]
     Indication: SYSTEMIC LUPUS ERYTHEMATOSUS
     Dosage: 200 MG/KG, UNK
     Dates: start: 20080101
  2. AMOXICILLIN [Suspect]
     Indication: BRONCHOPNEUMONIA
     Dosage: UNK
     Dates: start: 20080101
  3. CEFTRIAXONE [Suspect]
     Indication: SYSTEMIC LUPUS ERYTHEMATOSUS
     Dosage: 100 MG/KG, UNKNOWN
     Dates: start: 20080101

REACTIONS (1)
  - DRUG RASH WITH EOSINOPHILIA AND SYSTEMIC SYMPTOMS [None]
